FAERS Safety Report 8244542-X (Version None)
Quarter: 2012Q1

REPORT INFORMATION
  Report Type: 
  Country: None (occurrence: None)
  Receive Date: 20120329
  Receipt Date: 20120322
  Transmission Date: 20120608
  Serious: Yes (Death)
  Sender: FDA-Public Use
  Company Number: FR-JNJFOC-20110910189

PATIENT
  Sex: Male
  Weight: 75 kg

DRUGS (25)
  1. ZOPICLONE [Concomitant]
     Route: 065
     Dates: start: 20060101
  2. X-PREP [Concomitant]
     Route: 065
     Dates: start: 20090101
  3. HALDOL [Suspect]
     Indication: PRODUCT USED FOR UNKNOWN INDICATION
     Route: 048
     Dates: start: 20041027, end: 20090716
  4. TRIMEPRAZINE TARTRATE [Suspect]
     Indication: PRODUCT USED FOR UNKNOWN INDICATION
     Route: 048
     Dates: start: 20081220, end: 20110729
  5. CELESTAMINE TAB [Concomitant]
     Route: 048
     Dates: start: 20100101
  6. PARAFFIN [Concomitant]
     Route: 065
     Dates: start: 20090101
  7. RISPERDAL CONSTA [Suspect]
     Indication: SCHIZOPHRENIA, PARANOID TYPE
     Route: 030
     Dates: start: 20100708, end: 20110722
  8. LOXAPINE HCL [Suspect]
     Indication: PRODUCT USED FOR UNKNOWN INDICATION
     Route: 048
     Dates: start: 20010301
  9. LOXAPINE HCL [Suspect]
     Route: 048
     Dates: start: 20081220, end: 20110729
  10. BETAHISTINE [Suspect]
     Indication: PRODUCT USED FOR UNKNOWN INDICATION
     Route: 048
     Dates: start: 20110527, end: 20110729
  11. LEVOTHYROXINE SODIUM [Concomitant]
     Route: 065
     Dates: start: 20040101
  12. NORMACOL STANDARD [Concomitant]
     Route: 065
     Dates: start: 20090101
  13. ATACAND [Suspect]
     Indication: PRODUCT USED FOR UNKNOWN INDICATION
     Route: 048
     Dates: start: 20090102, end: 20090112
  14. ESIDRIX [Suspect]
     Indication: PRODUCT USED FOR UNKNOWN INDICATION
     Route: 048
     Dates: start: 20090113, end: 20110729
  15. ATARAX [Suspect]
     Indication: PRODUCT USED FOR UNKNOWN INDICATION
     Route: 048
     Dates: start: 20101220, end: 20110729
  16. ATACAND [Suspect]
     Route: 048
     Dates: start: 20090113, end: 20110729
  17. POLYETHYLENE GLYCOL [Concomitant]
     Indication: LAXATIVE SUPPORTIVE CARE
     Route: 065
  18. LEPTICUR [Concomitant]
     Route: 065
  19. VASTAREL [Suspect]
     Indication: PRODUCT USED FOR UNKNOWN INDICATION
     Route: 048
     Dates: start: 20110527, end: 20110729
  20. IMOVANE [Suspect]
     Indication: PRODUCT USED FOR UNKNOWN INDICATION
     Route: 048
     Dates: start: 20041227, end: 20110729
  21. LOVENOX [Concomitant]
     Route: 048
     Dates: start: 20110301
  22. EDUCTYL [Concomitant]
     Route: 065
     Dates: start: 20090101
  23. MODECATE [Concomitant]
     Route: 065
     Dates: start: 20060101
  24. AMLODIPINE BESYLATE [Suspect]
     Indication: PRODUCT USED FOR UNKNOWN INDICATION
     Route: 048
     Dates: start: 20081230, end: 20110729
  25. SULFARLEM [Concomitant]
     Route: 065

REACTIONS (2)
  - CARDIAC ARREST [None]
  - ELECTROCARDIOGRAM QT PROLONGED [None]
